FAERS Safety Report 8951375 (Version 2)
Quarter: 2012Q4

REPORT INFORMATION
  Report Type: Report from Study
  Country: GB (occurrence: GB)
  Receive Date: 20121207
  Receipt Date: 20121215
  Transmission Date: 20130627
  Serious: Yes (Hospitalization)
  Sender: FDA-Public Use
  Company Number: GB-JNJFOC-20121200300

PATIENT
  Age: 16 Year
  Sex: Male
  Weight: 52.4 kg

DRUGS (3)
  1. REMICADE [Suspect]
     Indication: CROHN^S DISEASE
     Route: 042
     Dates: start: 20111101
  2. AZATHIOPRINE [Concomitant]
  3. CIPROFLOXACIN [Concomitant]

REACTIONS (1)
  - Anal abscess [Recovered/Resolved]
